FAERS Safety Report 6408095-0 (Version None)
Quarter: 2009Q4

REPORT INFORMATION
  Report Type: 
  Country: None (occurrence: None)
  Receive Date: 20091016
  Receipt Date: 20091006
  Transmission Date: 20100525
  Serious: Yes (Other)
  Sender: FDA-Public Use
  Company Number: 2009US000551

PATIENT
  Age: 35 Year
  Sex: Female
  Weight: 54.4 kg

DRUGS (4)
  1. PROGRAF [Suspect]
     Indication: LIVER TRANSPLANT
     Dosage: 4 MG, BID, ORAL
     Route: 048
  2. ACTIGALL [Concomitant]
  3. EPIVIR [Concomitant]
  4. PRENATAL VITAMINS (TOCOPHEROL, NICOTINIC ACID, VITAMIN D NOS, MINERALS [Concomitant]

REACTIONS (3)
  - ABORTION SPONTANEOUS [None]
  - DRUG EXPOSURE DURING PREGNANCY [None]
  - PREGNANCY [None]
